FAERS Safety Report 21937765 (Version 3)
Quarter: 2023Q2

REPORT INFORMATION
  Report Type: Spontaneous
  Country: US (occurrence: US)
  Receive Date: 20230201
  Receipt Date: 20230529
  Transmission Date: 20230722
  Serious: Yes (Other)
  Sender: FDA-Public Use
  Company Number: US-BRISTOL-MYERS SQUIBB COMPANY-2023-015100

PATIENT
  Age: 68 Year
  Sex: Male

DRUGS (2)
  1. LENALIDOMIDE [Suspect]
     Active Substance: LENALIDOMIDE
     Indication: Plasma cell myeloma
     Dosage: FREQUENCY: TAKE 1 CAPSULE (15MG) BY MOUTH WHOLE WITH WATER AT THE SAME TIME EACH DAY ON DAYS 1-21 OF
     Route: 048
     Dates: start: 20221103
  2. LENALIDOMIDE [Suspect]
     Active Substance: LENALIDOMIDE
     Dosage: FREQUENCY: TAKE 1 CAPSULE (15MG) BY MOUTH WHOLE WITH WATER AT THE SAME TIME EACH DAY ON DAYS 1-21 OF
     Route: 048
     Dates: start: 20221103

REACTIONS (4)
  - Fatigue [Not Recovered/Not Resolved]
  - Diarrhoea [Not Recovered/Not Resolved]
  - Fungal infection [Recovering/Resolving]
  - Headache [Not Recovered/Not Resolved]
